FAERS Safety Report 4675682-X (Version None)
Quarter: 2005Q2

REPORT INFORMATION
  Report Type: 
  Country: None (occurrence: None)
  Receive Date: 20050527
  Receipt Date: 20041124
  Transmission Date: 20051028
  Serious: Yes (Other)
  Sender: FDA-Public Use
  Company Number: US-BRISTOL-MYERS SQUIBB COMPANY-12775300

PATIENT
  Age: 35 Year
  Sex: Male
  Weight: 72 kg

DRUGS (8)
  1. ERBITUX [Suspect]
     Indication: COLON CANCER
     Dosage: 230 MG ADMIN.ON 28-DEC-04/100 MG WEEKLY 04-JAN-05THROUGH25-JAN-05/150MG01-FEB/08-FEB100 MG/15-FEB.
     Route: 042
     Dates: start: 20041109, end: 20041109
  2. ATROPINE [Concomitant]
     Indication: PREMEDICATION
     Route: 042
     Dates: start: 20041109, end: 20041109
  3. BENADRYL [Concomitant]
     Indication: PREMEDICATION
     Route: 042
     Dates: start: 20041109, end: 20041109
  4. DECADRON [Concomitant]
     Indication: PREMEDICATION
     Route: 042
     Dates: start: 20041109, end: 20041109
  5. KYTRIL [Concomitant]
     Indication: PREMEDICATION
     Route: 042
     Dates: start: 20041109, end: 20041109
  6. IRINOTECAN [Concomitant]
     Route: 042
     Dates: start: 20041109, end: 20041109
  7. LARIAM [Concomitant]
     Indication: MALARIA PROPHYLAXIS
     Dates: start: 20040901, end: 20041001
  8. PRIMAQUINE [Concomitant]
     Indication: MALARIA PROPHYLAXIS
     Dates: start: 20041001, end: 20041108

REACTIONS (1)
  - ACNE [None]
